FAERS Safety Report 9391749 (Version 2)
Quarter: 2013Q3

REPORT INFORMATION
  Report Type: Report from Study
  Country: CA (occurrence: CA)
  Receive Date: 20130709
  Receipt Date: 20130808
  Transmission Date: 20140515
  Serious: Yes (Hospitalization, Other)
  Sender: FDA-Public Use
  Company Number: CA-ABBOTT-13P-028-1112790-00

PATIENT
  Age: 79 Year
  Sex: Female
  Weight: 106.69 kg

DRUGS (14)
  1. HUMIRA [Suspect]
     Indication: RHEUMATOID ARTHRITIS
     Route: 058
     Dates: end: 2013
  2. HUMIRA [Suspect]
     Route: 058
     Dates: start: 20130630
  3. INDAPAMIDE [Concomitant]
     Indication: PRODUCT USED FOR UNKNOWN INDICATION
     Dates: end: 201306
  4. LEUCOVORIN [Concomitant]
     Indication: RHEUMATOID ARTHRITIS
     Route: 048
  5. HYDROXYCHLOROQUINE [Concomitant]
     Indication: RHEUMATOID ARTHRITIS
     Route: 048
     Dates: start: 20130226
  6. ULORIC [Concomitant]
     Indication: GOUT
     Route: 048
     Dates: start: 20120828
  7. ERGOCALCIFEROL [Concomitant]
     Indication: VITAMIN D DEFICIENCY
     Route: 048
  8. ATENOLOL [Concomitant]
     Indication: HYPERTENSION
     Dosage: AT BEDTIME
     Route: 048
  9. RAMIPRIL [Concomitant]
     Indication: HYPERTENSION
     Route: 048
  10. SYNTHROID [Concomitant]
     Indication: HYPOTHYROIDISM
     Route: 048
  11. TYLENOL [Concomitant]
     Indication: ARTHRALGIA
     Dosage: IF NEEDED
     Route: 048
  12. LACTULOSE [Concomitant]
     Indication: CONSTIPATION
     Dosage: IF NEEDED
     Route: 048
  13. COLACE [Concomitant]
     Indication: CONSTIPATION
     Route: 048
  14. SENOKOT [Concomitant]
     Indication: CONSTIPATION
     Dosage: AT BEDTIME IF NEEDED
     Route: 048

REACTIONS (15)
  - Pain [Unknown]
  - Local swelling [Unknown]
  - Oedema peripheral [Unknown]
  - Mobility decreased [Unknown]
  - Rheumatoid arthritis [Recovered/Resolved]
  - Cystitis [Recovered/Resolved]
  - Joint swelling [Recovered/Resolved]
  - Urinary tract infection [Unknown]
  - Blood urea nitrogen/creatinine ratio increased [Unknown]
  - Hypokalaemia [Unknown]
  - Nocturia [Unknown]
  - Osteoarthritis [Recovered/Resolved]
  - Exostosis [Unknown]
  - Calcinosis [Unknown]
  - Joint warmth [Recovered/Resolved]
